FAERS Safety Report 9297677 (Version 2)
Quarter: 2013Q2

REPORT INFORMATION
  Report Type: Spontaneous
  Country: US (occurrence: US)
  Receive Date: 20130520
  Receipt Date: 20130621
  Transmission Date: 20140414
  Serious: Yes (Hospitalization)
  Sender: FDA-Public Use
  Company Number: US-BAYER-2013-060624

PATIENT
  Age: 22 Year
  Sex: Female
  Weight: 72 kg

DRUGS (6)
  1. YASMIN [Suspect]
     Indication: POLYCYSTIC OVARIES
  2. YASMIN [Suspect]
     Indication: CONTRACEPTION
  3. OCELLA [Suspect]
  4. YAZ [Suspect]
  5. IBUPROFEN [Concomitant]
     Dosage: UNK
     Route: 048
     Dates: start: 20090224
  6. SUDAFED SINUS [Concomitant]
     Dosage: 5-325 MG
     Route: 048
     Dates: start: 20090302

REACTIONS (1)
  - Intracranial venous sinus thrombosis [Recovered/Resolved]
